FAERS Safety Report 7445661-8 (Version None)
Quarter: 2011Q2

REPORT INFORMATION
  Report Type: 
  Country: None (occurrence: None)
  Receive Date: 20110429
  Receipt Date: 20110426
  Transmission Date: 20111010
  Serious: Yes (Other)
  Sender: FDA-Public Use
  Company Number: US-SANOFI-AVENTIS-2011SA025862

PATIENT
  Sex: Male

DRUGS (3)
  1. PLAVIX [Suspect]
     Route: 065
  2. ASPIRIN [Suspect]
     Route: 065
  3. PLAVIX [Suspect]
     Route: 065

REACTIONS (6)
  - CORONARY ARTERY OCCLUSION [None]
  - CONTUSION [None]
  - RED BLOOD CELL COUNT DECREASED [None]
  - HAEMOGLOBIN DECREASED [None]
  - HAEMATOCRIT DECREASED [None]
  - ASTHENIA [None]
